FAERS Safety Report 4352429-8 (Version None)
Quarter: 2004Q2

REPORT INFORMATION
  Report Type: 
  Country: None (occurrence: None)
  Receive Date: 20040428
  Receipt Date: 20040420
  Transmission Date: 20050107
  Serious: Yes (Death)
  Sender: FDA-Public Use
  Company Number: US-JNJFOC-20040404782

PATIENT
  Age: 67 Year
  Sex: Female

DRUGS (1)
  1. PANCREASE (PANCRELIPASE) CAPSULES [Suspect]
     Indication: PANCREATIC CARCINOMA
     Dosage: 10-12 CAPSULES DAILY
     Dates: start: 20020601, end: 20040309

REACTIONS (2)
  - MALIGNANT NEOPLASM PROGRESSION [None]
  - PANCREATIC CARCINOMA METASTATIC [None]
